FAERS Safety Report 7032367-2 (Version None)
Quarter: 2010Q4

REPORT INFORMATION
  Report Type: 
  Country: None (occurrence: None)
  Receive Date: 20101007
  Receipt Date: 20100729
  Transmission Date: 20110411
  Serious: Yes (Hospitalization)
  Sender: FDA-Public Use
  Company Number: TH-BRISTOL-MYERS SQUIBB COMPANY-15218142

PATIENT
  Age: 37 Year
  Sex: Female

DRUGS (3)
  1. CETUXIMAB [Suspect]
     Indication: SQUAMOUS CELL CARCINOMA OF THE CERVIX
     Dosage: CETUXIMAB INTRAVENOUS INF. RECENT INF ON 03NOV09 21SEP09-21SEP09 UNK-03NOV09
     Route: 042
     Dates: start: 20090921
  2. CISPLATIN [Suspect]
     Indication: SQUAMOUS CELL CARCINOMA OF THE CERVIX
     Dosage: RECENT INF ON 03NOV09
     Route: 042
     Dates: start: 20091001, end: 20091103
  3. RADIOTHERAPY [Suspect]
     Indication: SQUAMOUS CELL CARCINOMA OF THE CERVIX
     Dosage: 1DF=200GYX30F(6000CGY)UPTO200GYX20F(4000CGY)-PLVIS,200GYX5F(1000CGPLVISW/MIDLBLOCK,200GYX5F,19NOV09
     Dates: start: 20090928

REACTIONS (3)
  - ENTERITIS [None]
  - GASTROINTESTINAL NECROSIS [None]
  - SMALL INTESTINAL OBSTRUCTION [None]
